FAERS Safety Report 8794900 (Version 1)
Quarter: 2012Q4

REPORT INFORMATION
  Report Type: 
  Country: JP (occurrence: JP)
  Receive Date: 20120917
  Receipt Date: 20120917
  Transmission Date: 20130627
  Serious: Yes (Other)
  Sender: FDA-Public Use
  Company Number: JP-ROCHE-1124197

PATIENT
  Age: 71 Year
  Sex: Male

DRUGS (4)
  1. XELODA [Suspect]
     Indication: RECTAL CANCER RECURRENT
     Route: 048
  2. WARFARIN [Interacting]
     Indication: ATRIAL FIBRILLATION
     Route: 048
  3. AVASTIN [Suspect]
     Indication: RECTAL CANCER RECURRENT
     Dosage: Dosage is uncertain.
     Route: 041
  4. OXALIPLATIN [Concomitant]
     Indication: RECTAL CANCER RECURRENT
     Dosage: Dosage is uncertain.
     Route: 041

REACTIONS (4)
  - Drug interaction [Unknown]
  - Prothrombin time ratio increased [Unknown]
  - Faeces discoloured [Unknown]
  - Epistaxis [Unknown]
